FAERS Safety Report 7177716-X (Version None)
Quarter: 2010Q4

REPORT INFORMATION
  Report Type: 
  Country: None (occurrence: None)
  Receive Date: 20101123
  Receipt Date: 20100812
  Transmission Date: 20110411
  Serious: No
  Sender: FDA-Public Use
  Company Number: 017145

PATIENT
  Age: 27 Year
  Sex: Male

DRUGS (4)
  1. CIMZIA [Suspect]
     Indication: CROHN'S DISEASE
     Dosage: (TWO SHOTS SUBCUTANEOUS)
     Route: 058
     Dates: start: 20100601
  2. BACLOFEN [Concomitant]
  3. RILUTEK [Concomitant]
  4. VICODIN [Concomitant]

REACTIONS (6)
  - ABDOMINAL PAIN [None]
  - DECREASED APPETITE [None]
  - DRUG INEFFECTIVE [None]
  - FREQUENT BOWEL MOVEMENTS [None]
  - PYREXIA [None]
  - VOMITING [None]
